FAERS Safety Report 16487966 (Version 2)
Quarter: 2019Q3

REPORT INFORMATION
  Report Type: Spontaneous
  Country: FR (occurrence: FR)
  Receive Date: 20190627
  Receipt Date: 20190708
  Transmission Date: 20191004
  Serious: Yes (Other)
  Sender: FDA-Public Use
  Company Number: FR-MYLANLABS-2019M1059493

PATIENT
  Age: 78 Year
  Sex: Male

DRUGS (9)
  1. AMLODIPINE [Concomitant]
     Active Substance: AMLODIPINE BESYLATE
     Indication: HYPERTENSION
     Dosage: 5 MILLIGRAM, QD
     Route: 048
     Dates: start: 20181201
  2. AMIODARONE [Concomitant]
     Active Substance: AMIODARONE
     Indication: ARRHYTHMIA
     Dosage: 200 MILLIGRAM, QD
     Route: 048
     Dates: start: 20181204
  3. FUROSEMIDE. [Suspect]
     Active Substance: FUROSEMIDE
     Indication: FLUID OVERLOAD
     Dosage: 40 MILLIGRAM, QD
     Route: 048
     Dates: start: 20181130, end: 20181210
  4. AMOXICILLINE                       /00249601/ [Suspect]
     Active Substance: AMOXICILLIN
     Dosage: 2.5 GRAM, 4HOURS
     Route: 042
     Dates: start: 20181126, end: 20181211
  5. BISOPROLOL                         /00802602/ [Concomitant]
     Active Substance: BISOPROLOL
     Indication: ARRHYTHMIA
     Dosage: 2.5 MILLIGRAM, QD
     Route: 048
     Dates: start: 20181128
  6. RAMIPRIL. [Suspect]
     Active Substance: RAMIPRIL
     Indication: MYOCARDIAL ISCHAEMIA
     Dosage: 10 MILLIGRAM, QD
     Route: 048
     Dates: start: 20181204, end: 20181210
  7. RIFAMPICINE [Concomitant]
     Active Substance: RIFAMPIN
     Indication: ENDOCARDITIS
     Dosage: 900 MILLIGRAM, QD
     Route: 048
     Dates: start: 20181207
  8. AMOXICILLINE                       /00249601/ [Suspect]
     Active Substance: AMOXICILLIN
     Indication: ENDOCARDITIS
     Dosage: 15 GRAM, QD
     Route: 042
     Dates: start: 20181126, end: 20181211
  9. OXYCODONE [Concomitant]
     Active Substance: OXYCODONE
     Indication: PAIN
     Dosage: 50 MILLIGRAM, QD
     Route: 048
     Dates: start: 20181206, end: 20181213

REACTIONS (1)
  - Acute kidney injury [Recovered/Resolved]

NARRATIVE: CASE EVENT DATE: 20181210
